FAERS Safety Report 14538797 (Version 3)
Quarter: 2018Q1

REPORT INFORMATION
  Report Type: Spontaneous
  Country: US (occurrence: US)
  Receive Date: 20180216
  Receipt Date: 20180324
  Transmission Date: 20180509
  Serious: Yes (Hospitalization)
  Sender: FDA-Public Use
  Company Number: US-BRISTOL-MYERS SQUIBB COMPANY-BMS-2018-012589

PATIENT
  Age: 62 Year
  Sex: Male
  Weight: 60.77 kg

DRUGS (4)
  1. SPRYCEL [Suspect]
     Active Substance: DASATINIB
     Indication: PRODUCT USED FOR UNKNOWN INDICATION
     Dosage: 100 MG, QD
     Route: 048
     Dates: start: 2017
  2. ACYCLOVIR                          /00587301/ [Concomitant]
     Active Substance: ACYCLOVIR
     Indication: PRODUCT USED FOR UNKNOWN INDICATION
     Route: 065
  3. SPRYCEL [Suspect]
     Active Substance: DASATINIB
     Indication: ACUTE LYMPHOCYTIC LEUKAEMIA
     Dosage: 100 MG, FOR 2 DAYS AND THEN 1 DAY OFF
     Route: 048
     Dates: start: 2017
  4. PENICILLIN                         /00000901/ [Concomitant]
     Active Substance: PENICILLIN G
     Indication: PRODUCT USED FOR UNKNOWN INDICATION
     Route: 065

REACTIONS (18)
  - Weight decreased [Unknown]
  - Vomiting [Unknown]
  - Skin disorder [Unknown]
  - Vasodilatation [Unknown]
  - Tinnitus [Unknown]
  - Ageusia [Unknown]
  - Blood pressure abnormal [Unknown]
  - Off label use [Unknown]
  - Tinnitus [Unknown]
  - Head discomfort [Unknown]
  - Alopecia [Unknown]
  - Muscle spasms [Unknown]
  - Dysgeusia [Unknown]
  - Movement disorder [Unknown]
  - Skin exfoliation [Recovering/Resolving]
  - Neuropathy peripheral [Unknown]
  - Paraesthesia [Unknown]
  - Headache [Unknown]

NARRATIVE: CASE EVENT DATE: 201712
